FAERS Safety Report 14692370 (Version 1)
Quarter: 2018Q1

REPORT INFORMATION
  Report Type: Spontaneous
  Country: DE (occurrence: DE)
  Receive Date: 20180329
  Receipt Date: 20180329
  Transmission Date: 20180509
  Serious: Yes (Other)
  Sender: FDA-Public Use
  Company Number: DE-DEXPHARM-20180195

PATIENT
  Age: 36 Year
  Sex: Female

DRUGS (1)
  1. CHLORHEXAMED FORTE ALKOHOLFREI 0,2% MOUTH WASH [Suspect]
     Active Substance: CHLORHEXIDINE GLUCONATE
     Indication: PRODUCT USED FOR UNKNOWN INDICATION
     Dosage: UNK

REACTIONS (3)
  - Oral mucosal eruption [Recovered/Resolved]
  - Oral mucosal erythema [Recovered/Resolved]
  - Mouth haemorrhage [Recovered/Resolved]

NARRATIVE: CASE EVENT DATE: 20171025
